FAERS Safety Report 6645725-2 (Version None)
Quarter: 2010Q1

REPORT INFORMATION
  Report Type: 
  Country: None (occurrence: None)
  Receive Date: 20100318
  Receipt Date: 20100309
  Transmission Date: 20100710
  Serious: Yes (Hospitalization)
  Sender: FDA-Public Use
  Company Number: DSA_42654_2010

PATIENT
  Sex: Female

DRUGS (1)
  1. XENAZINE [Suspect]
     Indication: DRUG USE FOR UNKNOWN INDICATION
     Dosage: 12.5 MG TABLET, ONCE OR TWICE A DAY ORAL
     Route: 048
     Dates: start: 20081230

REACTIONS (2)
  - ATRIAL FIBRILLATION [None]
  - FATIGUE [None]
